FAERS Safety Report 9100700 (Version 2)
Quarter: 2013Q1

REPORT INFORMATION
  Report Type: Report from Study
  Country: SE (occurrence: SE)
  Receive Date: 20130215
  Receipt Date: 20130225
  Transmission Date: 20140127
  Serious: Yes (Life-Threatening, Hospitalization, Other)
  Sender: FDA-Public Use
  Company Number: SE-COVIDIEN/TYCO HEALTHCARE/MALLINCKRODT-T201300824

PATIENT
  Age: 77 Year
  Sex: Male

DRUGS (11)
  1. EXALGO EXTENDED RELEASE [Suspect]
     Indication: CANCER PAIN
     Dosage: UNK
     Route: 048
     Dates: start: 20000920, end: 20000928
  2. STEMETIL                           /00013301/ [Concomitant]
     Dosage: UNK
     Dates: start: 20000913, end: 20001003
  3. DICLOFENAC [Concomitant]
     Dosage: UNK
     Dates: start: 20000918, end: 20000929
  4. ARTONIL [Concomitant]
     Dosage: UNK
  5. DIFLUCAN [Concomitant]
     Dosage: UNK
  6. PANODIL [Concomitant]
     Dosage: UNK
  7. PREDNISOLON                        /00016201/ [Concomitant]
     Dosage: UNK
  8. MAREZINE [Concomitant]
     Dosage: UNK
  9. NEURONTIN [Concomitant]
     Dosage: UNK
  10. LAXOBERAL [Concomitant]
     Dosage: UNK
  11. LACTULOSE [Concomitant]
     Dosage: UNK

REACTIONS (8)
  - Shock [Recovered/Resolved]
  - Pneumonia aspiration [Recovered/Resolved]
  - Loss of consciousness [Recovered/Resolved]
  - Leukocytosis [Recovered/Resolved]
  - Hypoxia [Recovered/Resolved]
  - Hypotension [Recovered/Resolved]
  - Pyrexia [Recovered/Resolved]
  - Vomiting [Recovered/Resolved]
